FAERS Safety Report 9057694 (Version 2)
Quarter: 2013Q3

REPORT INFORMATION
  Report Type: Spontaneous
  Country: US (occurrence: US)
  Receive Date: 20130204
  Receipt Date: 20130827
  Transmission Date: 20140515
  Serious: Yes (Other)
  Sender: FDA-Public Use
  Company Number: US-PFIZER INC-2013038883

PATIENT
  Age: 44 Year
  Sex: Female
  Weight: 86.17 kg

DRUGS (1)
  1. BOSULIF [Suspect]
     Indication: LEUKAEMIA
     Dosage: 600 MG (6 TABLETS OF 100 MG) DAILY (2 EVERY 5 MIN)
     Dates: start: 20130121

REACTIONS (5)
  - Thyroid disorder [Unknown]
  - Gastrooesophageal reflux disease [Not Recovered/Not Resolved]
  - Flatulence [Not Recovered/Not Resolved]
  - Abdominal distension [Not Recovered/Not Resolved]
  - Diarrhoea [Recovering/Resolving]
